FAERS Safety Report 23763220 (Version 3)
Quarter: 2024Q4

REPORT INFORMATION
  Report Type: Report from Study
  Country: CN (occurrence: CN)
  Receive Date: 20240419
  Receipt Date: 20241213
  Transmission Date: 20250115
  Serious: Yes (Hospitalization, Other)
  Sender: GILEAD
  Company Number: CN-FOSUNKITE-FOSUNKITE-20240663

PATIENT
  Age: 65 Year
  Sex: Male
  Weight: 59.5 kg

DRUGS (9)
  1. AXICABTAGENE CILOLEUCEL [Suspect]
     Active Substance: AXICABTAGENE CILOLEUCEL
     Indication: Diffuse large B-cell lymphoma
     Dosage: 2.0?10^6 CELLS (NUMBER OF CAR-T CELLS) /KG
     Route: 041
     Dates: start: 20211015, end: 20211015
  2. CYCLOPHOSPHAMIDE [Concomitant]
     Active Substance: CYCLOPHOSPHAMIDE
     Indication: Diffuse large B-cell lymphoma
     Dosage: 50MG, QD
     Route: 041
     Dates: start: 20211010, end: 20211012
  3. CYCLOPHOSPHAMIDE [Concomitant]
     Active Substance: CYCLOPHOSPHAMIDE
     Dosage: 0.87 G, QD
     Route: 042
     Dates: start: 20211010, end: 20211012
  4. FLUDARABINE [Concomitant]
     Active Substance: FLUDARABINE PHOSPHATE
     Indication: Diffuse large B-cell lymphoma
     Dosage: 0.87MG, QD
     Route: 041
     Dates: start: 20211010, end: 20211012
  5. FLUDARABINE [Concomitant]
     Active Substance: FLUDARABINE PHOSPHATE
     Dosage: 50 MG, QD
     Route: 042
     Dates: start: 20211010, end: 20211012
  6. METFORMIN HYDROCHLORIDE [Concomitant]
     Active Substance: METFORMIN HYDROCHLORIDE
     Indication: Diabetes mellitus
     Dosage: 0.25 G, QD
     Route: 048
     Dates: start: 20210907
  7. ACARBOSE [Concomitant]
     Active Substance: ACARBOSE
     Indication: Diabetes mellitus
     Dosage: 0.05 G, QD
     Route: 048
     Dates: start: 20210907
  8. ACARBOSE [Concomitant]
     Active Substance: ACARBOSE
     Dosage: 0.05 G, QD
     Route: 048
     Dates: start: 20210907
  9. INSULIN NOS [Concomitant]
     Active Substance: INSULIN NOS
     Indication: Diabetes mellitus
     Dosage: 4IU, QD
     Route: 042
     Dates: start: 20211010

REACTIONS (1)
  - Hepatitis B reactivation [Recovered/Resolved]

NARRATIVE: CASE EVENT DATE: 20240325
